FAERS Safety Report 16208552 (Version 1)
Quarter: 2019Q2

REPORT INFORMATION
  Report Type: Report from Study
  Country: US (occurrence: US)
  Receive Date: 20190417
  Receipt Date: 20190417
  Transmission Date: 20190711
  Serious: Yes (Other)
  Sender: FDA-Public Use
  Company Number: US-TESAROUBC-2018-TSO2383-US

PATIENT
  Age: 50 Year
  Sex: Female
  Weight: 81.63 kg

DRUGS (1)
  1. ZEJULA [Suspect]
     Active Substance: NIRAPARIB
     Indication: OVARIAN CANCER
     Dosage: 100 MG, HS
     Route: 048
     Dates: start: 20181108

REACTIONS (12)
  - Swelling [Unknown]
  - Fatigue [Unknown]
  - Cough [Unknown]
  - Pain [Unknown]
  - Blindness [Unknown]
  - Blood glucose fluctuation [Unknown]
  - Nasopharyngitis [Unknown]
  - Underdose [Unknown]
  - Blood glucose increased [Unknown]
  - Amnesia [Unknown]
  - Increased appetite [Unknown]
  - Bronchitis [Unknown]

NARRATIVE: CASE EVENT DATE: 2018
